FAERS Safety Report 6196543-3 (Version None)
Quarter: 2009Q2

REPORT INFORMATION
  Report Type: 
  Country: None (occurrence: None)
  Receive Date: 20090520
  Receipt Date: 20090511
  Transmission Date: 20091009
  Serious: Yes (Other)
  Sender: FDA-Public Use
  Company Number: RO-BAXTER-2009BH008418

PATIENT
  Age: 21 Year
  Sex: Male
  Weight: 65 kg

DRUGS (4)
  1. FEIBA VH IMMUNO [Suspect]
     Indication: DRUG USE FOR UNKNOWN INDICATION
     Route: 042
     Dates: start: 20090511, end: 20090511
  2. FEIBA VH IMMUNO [Suspect]
     Route: 042
     Dates: start: 20090511, end: 20090511
  3. FEIBA VH IMMUNO [Suspect]
     Route: 042
     Dates: start: 20090511, end: 20090511
  4. FEIBA VH IMMUNO [Suspect]
     Route: 042
     Dates: start: 20090511, end: 20090511

REACTIONS (1)
  - HYPERSENSITIVITY [None]
